FAERS Safety Report 18602222 (Version 4)
Quarter: 2025Q1

REPORT INFORMATION
  Report Type: Spontaneous
  Country: DE (occurrence: DE)
  Receive Date: 20201210
  Receipt Date: 20250228
  Transmission Date: 20250409
  Serious: Yes (Death, Life-Threatening, Hospitalization, Other)
  Sender: MYLAN
  Company Number: None

PATIENT
  Age: 71 Year
  Sex: Female
  Weight: 71 kg

DRUGS (52)
  1. VALSARTAN [Suspect]
     Active Substance: VALSARTAN
     Indication: Product used for unknown indication
     Dosage: 320 MILLIGRAM, QD
     Route: 065
     Dates: start: 2005
  2. VALSARTAN [Suspect]
     Active Substance: VALSARTAN
     Dosage: ONCE IN THE MORNING, ONCE IN THE)
     Route: 065
     Dates: start: 201005
  3. VALSARTAN [Suspect]
     Active Substance: VALSARTAN
     Dosage: 160 MILLIGRAM, QD
     Route: 065
     Dates: start: 201202
  4. VALSARTAN [Suspect]
     Active Substance: VALSARTAN
     Route: 065
  5. VALSARTAN [Suspect]
     Active Substance: VALSARTAN
     Route: 065
  6. VALSARTAN [Suspect]
     Active Substance: VALSARTAN
     Route: 065
  7. PREDNISOLONE [Suspect]
     Active Substance: PREDNISOLONE
     Indication: Product used for unknown indication
     Route: 065
  8. VALSARTAN [Suspect]
     Active Substance: VALSARTAN
     Indication: Product used for unknown indication
     Dosage: 160 MILLIGRAM, BID
     Route: 065
     Dates: start: 200502
  9. VALSARTAN [Suspect]
     Active Substance: VALSARTAN
     Route: 065
  10. VALSARTAN [Suspect]
     Active Substance: VALSARTAN
     Indication: Product used for unknown indication
     Route: 065
  11. VALSARTAN [Suspect]
     Active Substance: VALSARTAN
     Route: 065
  12. VALSARTAN [Suspect]
     Active Substance: VALSARTAN
     Dosage: ? A TABLET OF 320 MG, BID
     Dates: start: 20180523, end: 20180612
  13. VALSARTAN [Suspect]
     Active Substance: VALSARTAN
     Indication: Product used for unknown indication
     Route: 065
  14. VALSARTAN [Suspect]
     Active Substance: VALSARTAN
     Route: 065
  15. VALSARTAN [Suspect]
     Active Substance: VALSARTAN
     Route: 065
  16. VALSARTAN [Suspect]
     Active Substance: VALSARTAN
     Route: 065
  17. VALSARTAN [Suspect]
     Active Substance: VALSARTAN
     Route: 065
  18. VALSARTAN [Suspect]
     Active Substance: VALSARTAN
     Route: 065
  19. VALSARTAN [Suspect]
     Active Substance: VALSARTAN
     Route: 065
  20. VALSARTAN [Suspect]
     Active Substance: VALSARTAN
     Dosage: 160 MILLIGRAM, QD
     Route: 065
     Dates: start: 201302
  21. AMLODIPINE [Suspect]
     Active Substance: AMLODIPINE BESYLATE
     Indication: Product used for unknown indication
     Route: 065
  22. AMLODIPINE [Suspect]
     Active Substance: AMLODIPINE BESYLATE
     Dosage: 5 MILLIGRAM, QD (ONGOING AT DISCHARGE FROM REHABILITATION)
     Route: 065
     Dates: start: 2013, end: 2018
  23. BISOPROLOL [Suspect]
     Active Substance: BISOPROLOL
     Indication: Product used for unknown indication
     Dosage: ? AN UNIT OF 10/25, QD, ONCE IN THE MORNING
     Route: 065
     Dates: start: 200903
  24. BISOPROLOL FUMARATE\HYDROCHLOROTHIAZIDE [Suspect]
     Active Substance: BISOPROLOL FUMARATE\HYDROCHLOROTHIAZIDE
     Indication: Product used for unknown indication
     Dosage: UNK, QD ? AN UNIT OF 10/25, QD (IN THE MORNING)
     Route: 065
     Dates: start: 200903
  25. AMLODIPINE MESYLATE [Suspect]
     Active Substance: AMLODIPINE MESYLATE
     Indication: Product used for unknown indication
     Dosage: (5 MG, BID, ONGOING AT DISCHARGE)
     Dates: start: 20180523, end: 20180612
  26. AMLODIPINE MESYLATE [Suspect]
     Active Substance: AMLODIPINE MESYLATE
     Route: 065
  27. BISOPROLOL FUMARATE\HYDROCHLOROTHIAZIDE [Suspect]
     Active Substance: BISOPROLOL FUMARATE\HYDROCHLOROTHIAZIDE
     Indication: Product used for unknown indication
     Route: 065
  28. LEVOTHYROXINE SODIUM [Suspect]
     Active Substance: LEVOTHYROXINE SODIUM
     Indication: Product used for unknown indication
     Dosage: 1.25 TABLETS OF 100 ?G, QD,
     Dates: start: 20180524, end: 20180612
  29. LEVOTHYROXINE SODIUM [Suspect]
     Active Substance: LEVOTHYROXINE SODIUM
     Route: 065
  30. Fentanyl CT [Concomitant]
     Indication: Product used for unknown indication
     Route: 065
  31. Tavor [Concomitant]
     Indication: Product used for unknown indication
     Route: 065
  32. VALSARTAN [Concomitant]
     Active Substance: VALSARTAN
     Indication: Product used for unknown indication
     Route: 065
  33. BISOPROLOL FUMARATE\HYDROCHLOROTHIAZIDE [Concomitant]
     Active Substance: BISOPROLOL FUMARATE\HYDROCHLOROTHIAZIDE
     Indication: Product used for unknown indication
     Route: 065
  34. FUROSEMIDE [Concomitant]
     Active Substance: FUROSEMIDE
     Indication: Product used for unknown indication
     Dosage: 1 X 40 MG, 2X DAI
     Route: 065
     Dates: start: 201903
  35. FUROSEMIDE [Concomitant]
     Active Substance: FUROSEMIDE
     Route: 065
  36. HALOPERIDOL [Concomitant]
     Active Substance: HALOPERIDOL
     Indication: Product used for unknown indication
  37. DIGITOXIN [Concomitant]
     Active Substance: DIGITOXIN
     Indication: Product used for unknown indication
     Route: 065
  38. HYDROCHLOROTHIAZIDE [Concomitant]
     Active Substance: HYDROCHLOROTHIAZIDE
     Indication: Product used for unknown indication
     Dosage: QD (? TABLET OF 25 MG)
     Dates: start: 20180524, end: 20180524
  39. Bisoprolol-ratiopharm [Concomitant]
     Indication: Product used for unknown indication
     Dates: start: 20180524, end: 20180612
  40. EUTHYROX [Concomitant]
     Active Substance: LEVOTHYROXINE SODIUM
     Indication: Product used for unknown indication
     Dosage: UNK, QD (1X 125, 1X DAILY MORNING)
     Route: 065
  41. POLYETHYLENE GLYCOL 3350\POTASSIUM CHLORIDE\SODIUM BICARBONATE\SODIUM [Concomitant]
     Active Substance: POLYETHYLENE GLYCOL 3350\POTASSIUM CHLORIDE\SODIUM BICARBONATE\SODIUM CHLORIDE
     Indication: Product used for unknown indication
     Route: 065
  42. MOMETASONE [Concomitant]
     Active Substance: MOMETASONE
     Indication: Product used for unknown indication
     Route: 065
  43. MOMETASONE [Concomitant]
     Active Substance: MOMETASONE
     Indication: Product used for unknown indication
     Route: 065
  44. PANTOPRAZOLE SODIUM [Concomitant]
     Active Substance: PANTOPRAZOLE SODIUM
     Indication: Product used for unknown indication
     Dosage: 1X 40, 1X DAILY (MORNING)
     Route: 065
  45. PANTOPRAZOLE [Concomitant]
     Active Substance: PANTOPRAZOLE
     Indication: Product used for unknown indication
     Route: 065
  46. HYDROMORPHONE [Concomitant]
     Active Substance: HYDROMORPHONE
     Indication: Product used for unknown indication
     Route: 065
  47. FERRO-SANOL DUODENAL [Concomitant]
     Active Substance: FERROUS GLYCINE SULFATE
     Indication: Product used for unknown indication
     Dosage: 1 DF, QD, 1X DAILY (MORNING)
  48. ACETAMINOPHEN [Concomitant]
     Active Substance: ACETAMINOPHEN
     Indication: Product used for unknown indication
     Route: 065
  49. IBUPROFEN [Concomitant]
     Active Substance: IBUPROFEN
     Indication: Product used for unknown indication
     Route: 065
  50. MIDAZOLAM [Concomitant]
     Active Substance: MIDAZOLAM
     Indication: Product used for unknown indication
     Route: 065
  51. LEVOTHYROXINE SODIUM [Concomitant]
     Active Substance: LEVOTHYROXINE SODIUM
     Indication: Product used for unknown indication
     Route: 065
  52. LEVOTHYROXINE SODIUM [Concomitant]
     Active Substance: LEVOTHYROXINE SODIUM
     Route: 065

REACTIONS (96)
  - Death [Fatal]
  - Depression suicidal [Fatal]
  - Metastases to lung [Not Recovered/Not Resolved]
  - Renal cell carcinoma [Not Recovered/Not Resolved]
  - Renal neoplasm [Recovered/Resolved]
  - Metastases to central nervous system [Unknown]
  - Disturbance in attention [Unknown]
  - Asthenia [Unknown]
  - Vasogenic cerebral oedema [Unknown]
  - Aphasia [Recovering/Resolving]
  - Cognitive disorder [Recovering/Resolving]
  - Gait disturbance [Unknown]
  - Memory impairment [Recovering/Resolving]
  - Arthralgia [Unknown]
  - Osteoarthritis [Unknown]
  - Coordination abnormal [Recovering/Resolving]
  - Pain in extremity [Recovering/Resolving]
  - Erythema [Unknown]
  - Bradycardia [Unknown]
  - Urinary retention [Unknown]
  - Atrial fibrillation [Unknown]
  - Blood pressure increased [Unknown]
  - Dizziness [Unknown]
  - Dermatosis [Unknown]
  - Diabetes mellitus [Unknown]
  - Visual impairment [Unknown]
  - Varicose vein [Unknown]
  - Cardiac failure [Unknown]
  - Erysipelas [Recovering/Resolving]
  - Colitis [Unknown]
  - Diarrhoea [Unknown]
  - Dyspnoea [Unknown]
  - Abdominal pain [Unknown]
  - Hypokalaemia [Unknown]
  - Basal cell carcinoma [Recovered/Resolved]
  - Joint swelling [Recovering/Resolving]
  - Cataract [Unknown]
  - Transient ischaemic attack [Unknown]
  - Arrhythmia [Unknown]
  - Chronic kidney disease [Unknown]
  - Loss of consciousness [Unknown]
  - Hypothyroidism [Unknown]
  - Confusional state [Unknown]
  - Nephrogenic anaemia [Unknown]
  - Gastroenteritis [Unknown]
  - Large intestine polyp [Unknown]
  - Abscess [Unknown]
  - Adenoma benign [Recovered/Resolved]
  - Haemorrhoids [Unknown]
  - Drug hypersensitivity [Unknown]
  - Blood glucose abnormal [Unknown]
  - Fatigue [Unknown]
  - Aortic dilatation [Unknown]
  - Ischaemia [Unknown]
  - Feeling hot [Unknown]
  - Functional gastrointestinal disorder [Recovered/Resolved]
  - Iron deficiency [Unknown]
  - Renal cyst [Unknown]
  - Swelling [Unknown]
  - Supraventricular tachycardia [Unknown]
  - Dysuria [Recovered/Resolved]
  - Ventricular extrasystoles [Unknown]
  - Incorrect dose administered [Unknown]
  - Peripheral swelling [Unknown]
  - Meniscal degeneration [Unknown]
  - Tinnitus [Unknown]
  - Urinary tract infection [Recovered/Resolved]
  - Drug intolerance [Unknown]
  - Weight increased [Recovering/Resolving]
  - Weight decreased [Unknown]
  - Melanocytic naevus [Unknown]
  - Anal prolapse [Unknown]
  - Pruritus [Unknown]
  - Insomnia [Unknown]
  - Tendon rupture [Unknown]
  - Cerumen impaction [Unknown]
  - Anaemia [Unknown]
  - Nocturia [Unknown]
  - Pleural effusion [Recovered/Resolved]
  - Productive cough [Unknown]
  - Defaecation disorder [Unknown]
  - Rash [Unknown]
  - Inflammation [Unknown]
  - Pustule [Unknown]
  - Vomiting [Unknown]
  - Anal incontinence [Not Recovered/Not Resolved]
  - Fibroma [Unknown]
  - General physical health deterioration [Recovering/Resolving]
  - Induration [Unknown]
  - Urinary incontinence [Not Recovered/Not Resolved]
  - Osteoporosis [Unknown]
  - Aphthous ulcer [Unknown]
  - Ventricular hypertrophy [Unknown]
  - Oedema peripheral [Recovering/Resolving]
  - Drug ineffective [Unknown]
  - Seborrhoeic keratosis [Unknown]

NARRATIVE: CASE EVENT DATE: 20070101
